FAERS Safety Report 4409554-2 (Version None)
Quarter: 2004Q3

REPORT INFORMATION
  Report Type: 
  Country: None (occurrence: None)
  Receive Date: 20040723
  Receipt Date: 20040715
  Transmission Date: 20050211
  Serious: Yes (Hospitalization)
  Sender: FDA-Public Use
  Company Number: SUS1-2004-00423

PATIENT
  Age: 29 Year
  Sex: Female

DRUGS (4)
  1. CARBATROL [Suspect]
     Indication: PARTIAL SEIZURES
     Dosage: 1600 MG/DAY
  2. FLUCONAZOLE [Suspect]
     Indication: BODY TINEA
     Dosage: 150 MG/DAY
  3. LAMOTRIGINE [Concomitant]
  4. BARBEXACLONE (BARBEXACLONE) [Concomitant]

REACTIONS (16)
  - BODY TINEA [None]
  - CEREBELLAR SYNDROME [None]
  - DIPLOPIA [None]
  - DIZZINESS [None]
  - DRUG TOXICITY [None]
  - EYE MOVEMENT DISORDER [None]
  - GAIT DISTURBANCE [None]
  - MICROSPORUM INFECTION [None]
  - NAUSEA [None]
  - NEUROLOGICAL EXAMINATION ABNORMAL [None]
  - NYSTAGMUS [None]
  - OPTICOKINETIC NYSTAGMUS TESTS ABNORMAL [None]
  - OSCILLOPSIA [None]
  - VISION BLURRED [None]
  - VOMITING [None]
  - WHITE BLOOD CELL COUNT DECREASED [None]
